FAERS Safety Report 8625738-1 (Version None)
Quarter: 2012Q3

REPORT INFORMATION
  Report Type: 
  Country: None (occurrence: None)
  Receive Date: 20120827
  Receipt Date: 20120813
  Transmission Date: 20120928
  Serious: Yes (Other)
  Sender: FDA-Public Use
  Company Number: IT-MYLANLABS-2012S1017083

PATIENT
  Age: 48 Year
  Sex: Female

DRUGS (5)
  1. CLOZAPINE [Suspect]
     Dosage: 25 MG/DAY
     Route: 065
  2. OLANZAPINE [Suspect]
     Dosage: UP TO 10 MG/DAY
     Route: 065
     Dates: start: 20080101
  3. CHLORPROMAZINE HCL [Suspect]
     Dosage: 50MG
     Route: 030
     Dates: start: 20081201
  4. HALOPERIDOL [Suspect]
     Dosage: 2MG
     Route: 030
     Dates: start: 20081201
  5. DOXAZOSIN MESYLATE [Concomitant]
     Indication: HYPERTENSION
     Route: 065

REACTIONS (2)
  - NEUROLEPTIC MALIGNANT SYNDROME [None]
  - CATATONIA [None]
